FAERS Safety Report 24150204 (Version 1)
Quarter: 2024Q3

REPORT INFORMATION
  Report Type: Report from Study
  Country: IT (occurrence: IT)
  Receive Date: 20240730
  Receipt Date: 20240730
  Transmission Date: 20241017
  Serious: Yes (Other)
  Sender: BRISTOL MYERS SQUIBB
  Company Number: None

PATIENT
  Age: 89 Year
  Sex: Female

DRUGS (6)
  1. ELIQUIS [Suspect]
     Active Substance: APIXABAN
     Indication: Atrial fibrillation
     Route: 048
  2. CIPRALEX [Concomitant]
     Active Substance: ESCITALOPRAM OXALATE
     Indication: Product used for unknown indication
  3. PROLIA [Concomitant]
     Active Substance: DENOSUMAB
     Indication: Product used for unknown indication
  4. MEMANTINA [MEMANTINE] [Concomitant]
     Indication: Product used for unknown indication
  5. SOFOSBUVIR [Concomitant]
     Active Substance: SOFOSBUVIR
     Indication: Product used for unknown indication
  6. VITAMINA D [ERGOCALCIFEROL] [Concomitant]
     Indication: Product used for unknown indication

REACTIONS (3)
  - Coma [Unknown]
  - Cerebral haemorrhage [Unknown]
  - Brain herniation [Unknown]

NARRATIVE: CASE EVENT DATE: 20240720
